FAERS Safety Report 17580186 (Version 1)
Quarter: 2020Q1

REPORT INFORMATION
  Report Type: Spontaneous
  Country: JP (occurrence: JP)
  Receive Date: 20200325
  Receipt Date: 20200325
  Transmission Date: 20200409
  Serious: Yes (Other)
  Sender: FDA-Public Use
  Company Number: JP-PFIZER INC-2020055529

PATIENT
  Age: 77 Year
  Sex: Female

DRUGS (3)
  1. MEILAX [Concomitant]
     Active Substance: ETHYL LOFLAZEPATE
     Indication: ANXIETY
     Dosage: 1 MG, 1X/DAY
     Dates: start: 20190712
  2. EFFEXOR [Suspect]
     Active Substance: VENLAFAXINE HYDROCHLORIDE
     Indication: DEPRESSIVE SYMPTOM
     Dosage: 37.5 MG, 1X/DAY
     Dates: start: 20200110, end: 20200204
  3. DOGMATYL [Concomitant]
     Active Substance: SULPIRIDE
     Indication: BEHAVIOUR DISORDER
     Dosage: 25 MG, 2X/DAY
     Dates: start: 20191216

REACTIONS (1)
  - Hepatic function abnormal [Recovered/Resolved]

NARRATIVE: CASE EVENT DATE: 20200204
